FAERS Safety Report 12380957 (Version 2)
Quarter: 2016Q2

REPORT INFORMATION
  Report Type: Spontaneous
  Country: GB (occurrence: GB)
  Receive Date: 20160518
  Receipt Date: 20160518
  Transmission Date: 20160815
  Serious: Yes (Hospitalization)
  Sender: FDA-Public Use
  Company Number: GB-WATSON-2016-10099

PATIENT
  Age: 71 Year
  Sex: Female
  Weight: 116.4 kg

DRUGS (4)
  1. BISOPROLOL (UNKNOWN) [Suspect]
     Active Substance: BISOPROLOL
     Indication: CARDIAC FAILURE CHRONIC
     Dosage: 10 MG, DAILY
     Route: 048
  2. RAMIPRIL (UNKNOWN) [Suspect]
     Active Substance: RAMIPRIL
     Indication: CARDIAC FAILURE CHRONIC
     Dosage: 10 MG, DAILY
     Route: 048
  3. SPIRONOLACTONE (UNKNOWN) [Suspect]
     Active Substance: SPIRONOLACTONE
     Indication: CARDIAC FAILURE CHRONIC
     Dosage: 100 MG, DAILY
     Route: 048
     Dates: start: 20160201
  4. LOSARTAN (UNKNOWN) [Suspect]
     Active Substance: LOSARTAN
     Indication: CARDIAC FAILURE CHRONIC
     Dosage: 100 MG, DAILY
     Route: 048
     Dates: start: 20160201

REACTIONS (3)
  - Acute kidney injury [Unknown]
  - Drug prescribing error [Unknown]
  - Hyperkalaemia [Recovering/Resolving]

NARRATIVE: CASE EVENT DATE: 20160426
